FAERS Safety Report 9175923 (Version 2)
Quarter: 2013Q2

REPORT INFORMATION
  Report Type: Spontaneous
  Country: US (occurrence: US)
  Receive Date: 20130320
  Receipt Date: 20130427
  Transmission Date: 20140414
  Serious: Yes (Hospitalization, Other)
  Sender: FDA-Public Use
  Company Number: US-PFIZER INC-2013089121

PATIENT
  Age: 69 Year
  Sex: Male
  Weight: 68.21 kg

DRUGS (49)
  1. TORISEL [Suspect]
     Indication: RENAL CELL CARCINOMA
     Dosage: 20 MG, WEEKLY
     Route: 042
     Dates: start: 20120917, end: 20130401
  2. TORISEL [Suspect]
     Dosage: 20 MG, WEEKLY
     Route: 042
     Dates: start: 201209, end: 20130401
  3. LIPITOR [Concomitant]
     Dosage: UNK, 1X/DAY
  4. SENOKOT [Concomitant]
     Dosage: UNK, AS NEEDED
     Route: 048
  5. LASIX [Concomitant]
     Dosage: 60 MG, 1X/DAY
  6. METOPROLOL [Concomitant]
     Dosage: 50 MG, 2X/DAY
  7. OXYCODONE [Concomitant]
     Dosage: 5 MG, AS NEEDED
  8. OXYCODONE [Concomitant]
     Dosage: 5 MG, (1-2 CAPSULE, Q 6 HOURLY)
     Route: 048
     Dates: start: 20120718
  9. OXYCODONE [Concomitant]
     Dosage: 5 MG, (1-2 CAPSULE, Q 6 HOURLY)
     Route: 048
     Dates: start: 20120524
  10. ATIVAN [Concomitant]
     Dosage: 0.5 MG, 1X/DAY
  11. COMPAZINE [Concomitant]
     Indication: NAUSEA
     Dosage: 10 MG, AS NEEDED
  12. ZOFRAN [Concomitant]
     Indication: NAUSEA
     Dosage: 8 MG, AS NEEDED
  13. ALLOPURINOL [Concomitant]
     Dosage: 100 MG, 3X/DAY
  14. ALLOPURINOL [Concomitant]
     Dosage: 100 MG, 3X/DAY
     Route: 048
     Dates: start: 20121015
  15. ALLOPURINOL [Concomitant]
     Dosage: 100 MG, 3X/DAY
     Route: 048
     Dates: start: 20130211
  16. ALLOPURINOL [Concomitant]
     Dosage: 100 MG, 3X/DAY
     Route: 048
     Dates: start: 20120504
  17. ALLOPURINOL [Concomitant]
     Dosage: 100 MG, 3X/DAY
     Route: 048
     Dates: start: 20120614
  18. ALLOPURINOL [Concomitant]
     Dosage: 100 MG, 3X/DAY
     Route: 048
     Dates: start: 20120712
  19. ALLOPURINOL [Concomitant]
     Dosage: 100 MG, 3X/DAY
     Route: 048
     Dates: start: 20121015
  20. ALLOPURINOL [Concomitant]
     Dosage: 100 MG, 3X/DAY
     Route: 048
     Dates: start: 20130215
  21. FLONASE [Concomitant]
     Dosage: UNK, 2X/DAY
     Route: 045
  22. LACTULOSE [Concomitant]
     Indication: CONSTIPATION
     Dosage: 30 ML, (ONCE OR TWICE DAILY AS NEEDED)
     Route: 048
     Dates: start: 20120606
  23. LORAZEPAM [Concomitant]
     Indication: NAUSEA
     Dosage: 0.5 MG, (1 TABLET EVERY SIX HOURS AS NEEDED)
     Route: 048
     Dates: start: 20120906
  24. LORAZEPAM [Concomitant]
     Indication: ANXIETY
     Dosage: 0.5 MG, (1 TABLET, EVERY NIGHT BEFORE SLEEP)
     Route: 048
     Dates: start: 20130311
  25. PROCHLORPERAZINE MALEATE [Concomitant]
     Indication: NAUSEA
     Dosage: 10 MG, (1 TABLET, EVERY SIX HOURS AS NEEDED)
     Route: 048
     Dates: start: 20120907
  26. PROCHLORPERAZINE MALEATE [Concomitant]
     Dosage: 10 MG, (1 TABLET, ONCE EVERY SIX HOURS AS NEEDED)
     Route: 048
     Dates: start: 20120524
  27. CLINDAMYCIN PHOSPHATE [Concomitant]
     Dosage: 1 %, 2X/DAY
     Route: 061
     Dates: start: 20121001
  28. FLUTICASONE [Concomitant]
     Dosage: 50 UG, 2X/DAY (50 MCG/ACTUATION, 1 SPRAY)
     Route: 045
     Dates: start: 20121203
  29. OXYCODONE-ACETAMINOPHEN [Concomitant]
     Dosage: 5-325 MG, 1 TABLET, EVERY 6 HOURS
     Route: 048
     Dates: start: 20130311
  30. DIGOXIN [Concomitant]
     Dosage: 125 UG, 1X/DAY
     Route: 048
     Dates: start: 20130412
  31. METOPROLOL TARTRATE [Concomitant]
     Dosage: 50 MG, 2X/DAY
     Route: 048
     Dates: start: 20130412
  32. METOPROLOL TARTRATE [Concomitant]
     Dosage: 75 MG, 2X/DAY
     Route: 048
     Dates: start: 20130325
  33. ONDANSETRON HCL [Concomitant]
     Indication: NAUSEA
     Dosage: 8 MG, (EVERY 8 HOURS AS NEEDED)
     Route: 048
     Dates: start: 20120907
  34. ONDANSETRON HCL [Concomitant]
     Dosage: 8 MG, (1 TABLET, EVERY 8 HPURS AS NEEDED)
     Route: 048
     Dates: start: 20120906
  35. FUROSEMIDE [Concomitant]
     Dosage: 40 MG, 1X/DAY
     Dates: start: 20130201
  36. FUROSEMIDE [Concomitant]
     Dosage: 20 MG, 1X/DAY (TAKE 1 TAB DAILY X 4 DAYS)
     Route: 048
     Dates: start: 20130121
  37. SENNOSIDES [Concomitant]
     Dosage: UNK (1 TABLET, ONCE DAILY AS NEEDED)
     Route: 048
     Dates: start: 20130304
  38. ATORVASTATIN [Concomitant]
     Dosage: UNK (1 TABLET, EVERY DAY)
     Route: 048
     Dates: start: 20130304
  39. SILODOSIN [Concomitant]
     Dosage: 8 MG, 2X/DAY (RD)
     Dates: start: 20130408
  40. CIPROFLOXACIN [Concomitant]
     Dosage: 500 MG, 2X/DAY (RD)
     Dates: start: 20130408
  41. SUNITINIB [Concomitant]
     Dosage: 50 MG, CYCLIC (1 CAPSULE DAILY FOR 4 WEEKS/2 WEEKS OFF)
     Route: 048
     Dates: start: 20120508
  42. SUNITINIB [Concomitant]
     Dosage: 25 MG, 1X/DAY
     Route: 048
     Dates: start: 20120524
  43. SUNITINIB [Concomitant]
     Dosage: 12.5 MG, 1X/DAY
     Route: 048
     Dates: start: 20120524
  44. SUNITINIB [Concomitant]
     Dosage: 25 MG, CYCLIC (ONCE DAILY FOR 2 WEEKS ON, THEN 1 WEEK OFF)
     Route: 048
     Dates: start: 20120718
  45. SUNITINIB [Concomitant]
     Dosage: 12.5 MG, 1X/DAY
     Route: 048
     Dates: start: 20120808
  46. PREDNISONE [Concomitant]
     Dosage: 40 MG, 1X/DAY (20 MG, 2 TABLETS DAILY FOR 5 DAYS)
     Route: 048
     Dates: start: 20120614
  47. PREDNISONE [Concomitant]
     Dosage: 20 MG, (1 TABLET AS DIRECTED)
     Route: 048
     Dates: start: 20120718
  48. INDOMETHACIN [Concomitant]
     Dosage: 50 MG, 3X/DAY
     Route: 048
     Dates: start: 20120718
  49. POTASSIUM CHLORIDE [Concomitant]
     Dosage: 10 MEQ, 1X/DAY (ONE CAPSULE DAILY FOR 4 DAYS)
     Route: 048
     Dates: start: 20130121

REACTIONS (17)
  - Pulmonary hypertension [Recovering/Resolving]
  - Renal impairment [Unknown]
  - Blood alkaline phosphatase increased [Unknown]
  - Pleural effusion [Unknown]
  - Dyspnoea [Unknown]
  - Generalised oedema [Unknown]
  - Lymphadenopathy [Unknown]
  - Cardiomegaly [Unknown]
  - Pericardial fibrosis [Unknown]
  - Pericardial effusion [Unknown]
  - Emphysema [Unknown]
  - Pulmonary mass [Unknown]
  - Retroperitoneal lymphadenopathy [Unknown]
  - Lymphadenopathy [Unknown]
  - Aortic calcification [Unknown]
  - Lymphadenopathy [Unknown]
  - Blood glucose increased [Unknown]
